FAERS Safety Report 5866307-6 (Version None)
Quarter: 2008Q3

REPORT INFORMATION
  Report Type: 
  Country: None (occurrence: None)
  Receive Date: 20080901
  Receipt Date: 20080825
  Transmission Date: 20090109
  Serious: Yes (Hospitalization)
  Sender: FDA-Public Use
  Company Number: PHHY2008FR13365

PATIENT
  Sex: Female

DRUGS (4)
  1. EXELON [Suspect]
     Dosage: 4.6 MG PATCH, UNK
     Route: 062
  2. EXELON [Suspect]
     Dosage: 9.5 MG PATCH, UNK
  3. EXELON [Suspect]
     Dosage: 2 PATCHES (4.6 MG AND 9.5 MG) AT ONCE
     Route: 062
     Dates: start: 20080522
  4. DEROXAT [Concomitant]
     Indication: DEPRESSION
     Dosage: 20 MG/DAY

REACTIONS (5)
  - ACCIDENTAL OVERDOSE [None]
  - DEHYDRATION [None]
  - DRUG ADMINISTRATION ERROR [None]
  - NAUSEA [None]
  - VOMITING [None]
